FAERS Safety Report 5454047-7 (Version None)
Quarter: 2007Q3

REPORT INFORMATION
  Report Type: 
  Country: None (occurrence: None)
  Receive Date: 20070917
  Receipt Date: 20070702
  Transmission Date: 20080115
  Serious: Yes (Other)
  Sender: FDA-Public Use
  Company Number: US-ASTRAZENECA-2006UW04559

PATIENT
  Age: 686 Month
  Sex: Male
  Weight: 93.2 kg

DRUGS (5)
  1. SEROQUEL [Suspect]
     Indication: PARANOIA
     Route: 048
     Dates: start: 20010101
  2. SEROQUEL [Suspect]
     Indication: DELUSION
     Route: 048
     Dates: start: 20010101
  3. ZYPREXA [Suspect]
     Dates: start: 19980201, end: 20020901
  4. HALDOL [Concomitant]
  5. RISPERDAL [Concomitant]

REACTIONS (3)
  - DIABETES MELLITUS [None]
  - INJURY [None]
  - PANCREATITIS [None]
